FAERS Safety Report 8711182 (Version 3)
Quarter: 2013Q4

REPORT INFORMATION
  Report Type: Spontaneous
  Country: US (occurrence: US)
  Receive Date: 20120807
  Receipt Date: 20131101
  Transmission Date: 20140711
  Serious: No
  Sender: FDA-Public Use
  Company Number: US-009507513-1208USA000751

PATIENT
  Age: 64 Year
  Sex: Female

DRUGS (7)
  1. ZEGERID OTC CAPSULES [Suspect]
     Indication: DYSPEPSIA
     Dosage: 20 MG, QD
     Route: 048
     Dates: start: 201201, end: 201203
  2. ZEGERID OTC CAPSULES [Suspect]
     Dosage: UNK
  3. INDERAL [Concomitant]
     Indication: SUPRAVENTRICULAR TACHYCARDIA
     Dosage: UNK, UNKNOWN
  4. INDERAL [Concomitant]
     Indication: ATRIAL TACHYCARDIA
  5. FLECAINIDE ACETATE [Concomitant]
     Indication: SUPRAVENTRICULAR TACHYCARDIA
     Dosage: UNK, UNKNOWN
  6. FLECAINIDE ACETATE [Concomitant]
     Indication: ATRIAL TACHYCARDIA
  7. HYDROCHLOROTHIAZIDE [Concomitant]
     Indication: MENIERE^S DISEASE
     Dosage: UNK, UNKNOWN

REACTIONS (2)
  - Vision blurred [Recovered/Resolved]
  - Feeling abnormal [Recovered/Resolved]
